FAERS Safety Report 7124823-3 (Version None)
Quarter: 2010Q4

REPORT INFORMATION
  Report Type: 
  Country: None (occurrence: None)
  Receive Date: 20101129
  Receipt Date: 20101123
  Transmission Date: 20110411
  Serious: Yes (Other)
  Sender: FDA-Public Use
  Company Number: DE-GENZYME-CAMP-1000276

PATIENT
  Sex: Female
  Weight: 60 kg

DRUGS (2)
  1. ALEMTUZUMAB [Suspect]
     Indication: MULTIPLE SCLEROSIS
     Dosage: 12 MG, QDX5
     Route: 042
     Dates: start: 20081110, end: 20081114
  2. ALEMTUZUMAB [Suspect]
     Dosage: 12 MG, QDX3
     Route: 042
     Dates: start: 20091123, end: 20091125

REACTIONS (1)
  - CERVICAL DYSPLASIA [None]
